FAERS Safety Report 13092754 (Version 1)
Quarter: 2017Q1

REPORT INFORMATION
  Report Type: Spontaneous
  Country: US (occurrence: US)
  Receive Date: 20170106
  Receipt Date: 20170106
  Transmission Date: 20170428
  Serious: No
  Sender: FDA-Public Use
  Company Number: US-JNJFOC-20161209145

PATIENT
  Sex: Female
  Weight: 9.07 kg

DRUGS (1)
  1. INFANTS TYLENOL [Suspect]
     Active Substance: ACETAMINOPHEN
     Indication: EAR PAIN
     Route: 048

REACTIONS (2)
  - Expired product administered [Unknown]
  - Product container issue [Unknown]
